FAERS Safety Report 9321457 (Version 2)
Quarter: 2013Q2

REPORT INFORMATION
  Report Type: Spontaneous
  Country: US (occurrence: None)
  Receive Date: 20130528
  Receipt Date: 20130628
  Transmission Date: 20140414
  Serious: Yes (Hospitalization)
  Sender: FDA-Public Use
  Company Number: ACO_36366_2013

PATIENT
  Age: 63 Year
  Sex: Male

DRUGS (8)
  1. AMPYRA (DALFAMPRIDINE) TABLET, 10MG [Suspect]
     Indication: PRODUCT USED FOR UNKNOWN INDICATION
     Route: 048
  2. TOPROL (METOPROLOL SUCCINATE) [Concomitant]
  3. RANITIDINE (RANITIDINE HYDROCHLORIDE) [Concomitant]
  4. LIPITOR (ATORVASTATIN CALCIUM) [Concomitant]
  5. FENOFIBRATE (FENOFIBRATE) (FENOFIBRATE) [Concomitant]
  6. PLAVIX (CLOPIDOGREL BISULFATE) [Concomitant]
  7. ASA (ACETYLSALICYLIC ACID) [Concomitant]
  8. ZINC (ZINC GLUCONATE) [Concomitant]

REACTIONS (5)
  - Myocardial infarction [None]
  - Dyspepsia [None]
  - Hyperhidrosis [None]
  - Coronary artery occlusion [None]
  - Device occlusion [None]
